FAERS Safety Report 18611324 (Version 8)
Quarter: 2021Q2

REPORT INFORMATION
  Report Type: Spontaneous
  Country: GB (occurrence: GB)
  Receive Date: 20201214
  Receipt Date: 20210528
  Transmission Date: 20210717
  Serious: Yes (Life-Threatening, Hospitalization, Other)
  Sender: FDA-Public Use
  Company Number: GB-TEVA-2020-GB-1857209

PATIENT
  Age: 64 Year
  Sex: Male

DRUGS (7)
  1. CLOPIDOGREL [Suspect]
     Active Substance: CLOPIDOGREL BISULFATE
     Indication: TRANSIENT ISCHAEMIC ATTACK
     Dosage: 75 MILLIGRAM DAILY; THERAPY START DATE: ASKED BUT UNKNOWN, THERAPY END DATE : ASKED BUT UNKNOWN
     Route: 048
  2. SERTRALINE [Suspect]
     Active Substance: SERTRALINE HYDROCHLORIDE
     Indication: DEPRESSED MOOD
     Dosage: 150 MILLIGRAM,THERAPY END DATE : ASKED BUT UNKNOWN
     Route: 048
  3. SIMVASTATIN. [Suspect]
     Active Substance: SIMVASTATIN
     Indication: HYPERLIPIDAEMIA
     Dosage: 40 MILLIGRAM DAILY; THERAPY START DATE: ASKED BUT UNKNOWN, THERAPY END DATE : ASKED BUT UNKNOWN
     Route: 048
  4. PROCYCLIDINE [Suspect]
     Active Substance: PROCYCLIDINE
     Indication: EXTRAPYRAMIDAL DISORDER
     Dosage: 45 MILLIGRAM DAILY; THERAPY START DATE: ASKED BUT UNKNOWN
     Route: 048
  5. CLOZARIL [Suspect]
     Active Substance: CLOZAPINE
     Indication: SCHIZOPHRENIA
     Dosage: UNK
     Route: 048
     Dates: start: 20090819, end: 202011
  6. FOLIC ACID. [Suspect]
     Active Substance: FOLIC ACID
     Indication: BLOOD FOLATE DECREASED
     Dosage: 5 MILLIGRAM,THERAPY START DATE: ASKED BUT UNKNOWN, THERAPY END DATE : ASKED BUT UNKNOWN
     Route: 048
  7. THIAMINE. [Suspect]
     Active Substance: THIAMINE
     Indication: VITAMIN B COMPLEX DEFICIENCY
     Dosage: 300 MILLIGRAM DAILY; THERAPY START DATE: ASKED BUT UNKNOWN, THERAPY END DATE : ASKED BUT UNKNOWN
     Route: 048

REACTIONS (3)
  - Hospitalisation [Unknown]
  - Fall [Unknown]
  - Product dose omission issue [Unknown]

NARRATIVE: CASE EVENT DATE: 20201106
